FAERS Safety Report 16916748 (Version 1)
Quarter: 2019Q4

REPORT INFORMATION
  Report Type: Spontaneous
  Country: DE (occurrence: DE)
  Receive Date: 20191015
  Receipt Date: 20191015
  Transmission Date: 20200122
  Serious: No
  Sender: FDA-Public Use
  Company Number: DE-HORMOSAN PHARMA GMBH-2019-05267

PATIENT
  Sex: Male

DRUGS (2)
  1. SILDENAFIL-HORMOSAN 100 MG FILMTABLETTEN [Suspect]
     Active Substance: SILDENAFIL CITRATE
     Indication: PRODUCT USED FOR UNKNOWN INDICATION
     Dosage: 50 MILLIGRAM (ERRONEOUSLY TOOK INITIALLY HALF, THEN 1 WHOLE TABLET, 6 HOURS INTERVAL PERIOD)
     Route: 065
  2. SILDENAFIL-HORMOSAN 100 MG FILMTABLETTEN [Suspect]
     Active Substance: SILDENAFIL CITRATE
     Dosage: 100 MILLIGRAM (ERRONEOUSLY TOOK INITIALLY HALF, THEN 1 WHOLE TABLET, 6 HOURS INTERVAL PERIOD)
     Route: 065

REACTIONS (8)
  - Inappropriate schedule of product administration [Unknown]
  - Myalgia [Unknown]
  - Overdose [Unknown]
  - Pain in extremity [Unknown]
  - Incorrect dose administered [Unknown]
  - Cyanopsia [Unknown]
  - Libido increased [Unknown]
  - Paraesthesia [Unknown]
